FAERS Safety Report 8326034-2 (Version None)
Quarter: 2012Q2

REPORT INFORMATION
  Report Type: 
  Country: None (occurrence: None)
  Receive Date: 20120501
  Receipt Date: 20110522
  Transmission Date: 20120825
  Serious: Yes (Other)
  Sender: FDA-Public Use
  Company Number: US-SANOFI-AVENTIS-2011SA032992

PATIENT
  Age: 51 Year
  Sex: Male

DRUGS (4)
  1. LANTUS [Suspect]
     Dosage: DOSE:42 UNIT(S)
     Route: 058
     Dates: start: 20100101
  2. SOLOSTAR [Suspect]
     Dates: start: 20100101
  3. APIDRA [Suspect]
     Dosage: 8-10 UNITS TWICE A DAY
     Route: 058
     Dates: start: 20100101
  4. SOLOSTAR [Suspect]
     Dates: start: 20100101

REACTIONS (3)
  - HUNGER [None]
  - WEIGHT INCREASED [None]
  - BLOOD GLUCOSE INCREASED [None]
